FAERS Safety Report 17418521 (Version 1)
Quarter: 2020Q1

REPORT INFORMATION
  Report Type: Spontaneous
  Country: US (occurrence: US)
  Receive Date: 20200214
  Receipt Date: 20200214
  Transmission Date: 20200409
  Serious: Yes (Hospitalization, Other)
  Sender: FDA-Public Use
  Company Number: US-PFIZER INC-2020066441

PATIENT
  Age: 84 Year
  Sex: Male

DRUGS (1)
  1. VYNDAQEL [Suspect]
     Active Substance: TAFAMIDIS MEGLUMINE
     Indication: AMYLOIDOSIS
     Dosage: 20 MG, UNK
     Dates: start: 20190722

REACTIONS (11)
  - Localised oedema [Unknown]
  - Chest pain [Unknown]
  - Fall [Unknown]
  - Skin laceration [Unknown]
  - Product use in unapproved indication [Unknown]
  - Systemic lupus erythematosus [Unknown]
  - Rib fracture [Unknown]
  - Dyspnoea [Unknown]
  - Hallucination [Unknown]
  - Off label use [Unknown]
  - Dyspnoea exertional [Unknown]
